FAERS Safety Report 6182734-4 (Version None)
Quarter: 2009Q2

REPORT INFORMATION
  Report Type: 
  Country: None (occurrence: None)
  Receive Date: 20090505
  Receipt Date: 20090424
  Transmission Date: 20091009
  Serious: Yes (Death)
  Sender: FDA-Public Use
  Company Number: GXKR2009SK05080

PATIENT
  Age: 44 Year
  Sex: Female

DRUGS (4)
  1. ESTRADIOL [Suspect]
  2. FLURBIPROFEN [Suspect]
     Indication: ARTHRALGIA
     Dosage: 50 MG/DAY, ORAL
     Route: 048
     Dates: start: 20081030, end: 20081101
  3. OSTEOGENON (DURAPATITE) [Concomitant]
  4. PARALEN (PARACETAMOL) [Concomitant]

REACTIONS (19)
  - ANAEMIA [None]
  - ARTHRALGIA [None]
  - BRADYCARDIA [None]
  - CARDIAC FIBRILLATION [None]
  - CARDIOPULMONARY FAILURE [None]
  - CHILLS [None]
  - CULTURE POSITIVE [None]
  - CYTOLYTIC HEPATITIS [None]
  - DRUG RASH WITH EOSINOPHILIA AND SYSTEMIC SYMPTOMS [None]
  - GENERALISED OEDEMA [None]
  - HEADACHE [None]
  - HYPOALBUMINAEMIA [None]
  - IDIOSYNCRATIC DRUG REACTION [None]
  - MALNUTRITION [None]
  - OSTEOMA [None]
  - PNEUMONITIS [None]
  - PYREXIA [None]
  - STAPHYLOCOCCAL INFECTION [None]
  - VENTRICULAR ARRHYTHMIA [None]
